FAERS Safety Report 23948857 (Version 1)
Quarter: 2024Q2

REPORT INFORMATION
  Report Type: Spontaneous
  Country: FI (occurrence: FI)
  Receive Date: 20240607
  Receipt Date: 20240607
  Transmission Date: 20240716
  Serious: Yes (Hospitalization)
  Sender: FDA-Public Use
  Company Number: None

PATIENT
  Age: 63 Year
  Sex: Male

DRUGS (10)
  1. OLANZAPINE [Suspect]
     Active Substance: OLANZAPINE
     Indication: Bipolar disorder
     Route: 048
     Dates: start: 202101, end: 20240520
  2. ZIPRASIDONE [Suspect]
     Active Substance: ZIPRASIDONE
     Indication: Bipolar disorder
     Dosage: 1X1?DAILY DOSE: 80 MILLIGRAM
     Route: 048
     Dates: start: 202210, end: 20240520
  3. Cardace [Concomitant]
  4. ESCITALOPRAM [Concomitant]
     Active Substance: ESCITALOPRAM OXALATE
  5. LANTUS [Concomitant]
     Active Substance: INSULIN GLARGINE
  6. SITAGLIPTIN [Concomitant]
     Active Substance: SITAGLIPTIN
  7. ATORVASTATIN [Concomitant]
     Active Substance: ATORVASTATIN
  8. AMLODIPINE BESYLATE [Concomitant]
     Active Substance: AMLODIPINE BESYLATE
  9. ORAMET [Concomitant]
  10. VALPROIC ACID [Concomitant]
     Active Substance: VALPROIC ACID

REACTIONS (8)
  - Renal failure [Recovering/Resolving]
  - Blood creatine phosphokinase increased [Recovering/Resolving]
  - Neuroleptic malignant syndrome [Recovering/Resolving]
  - Urinary tract infection [Recovering/Resolving]
  - Pyrexia [Recovering/Resolving]
  - Muscle rigidity [Recovering/Resolving]
  - C-reactive protein increased [Recovering/Resolving]
  - Confusional state [Recovering/Resolving]

NARRATIVE: CASE EVENT DATE: 20240501
